FAERS Safety Report 5251138-0 (Version None)
Quarter: 2007Q1

REPORT INFORMATION
  Report Type: 
  Country: None (occurrence: None)
  Receive Date: 20070228
  Receipt Date: 20060831
  Transmission Date: 20070707
  Serious: No
  Sender: FDA-Public Use
  Company Number: US-GLAXOSMITHKLINE-A0618795A

PATIENT
  Age: 18 Year
  Sex: Male

DRUGS (6)
  1. LAMICTAL [Suspect]
     Indication: BIPOLAR DISORDER
     Dosage: 200MG TWICE PER DAY
     Route: 048
     Dates: start: 20060101
  2. TOPAMAX [Suspect]
     Route: 065
  3. DEPAKOTE [Concomitant]
  4. EFFEXOR [Concomitant]
  5. WELLBUTRIN XL [Concomitant]
  6. ANTABUSE [Concomitant]

REACTIONS (1)
  - VISION BLURRED [None]
